FAERS Safety Report 13609978 (Version 1)
Quarter: 2017Q2

REPORT INFORMATION
  Report Type: Spontaneous
  Country: JP (occurrence: JP)
  Receive Date: 20170603
  Receipt Date: 20170603
  Transmission Date: 20170830
  Serious: Yes (Other)
  Sender: FDA-Public Use
  Company Number: JP-AMGEN-JPNSP2017085137

PATIENT
  Sex: Female
  Weight: 2 kg

DRUGS (5)
  1. EPOETIN ALFA [Suspect]
     Active Substance: ERYTHROPOIETIN
     Indication: EXPOSURE DURING PREGNANCY
     Dosage: UNK
     Route: 064
  2. HYDRALAZINE HYDROCHLORIDE. [Concomitant]
     Active Substance: HYDRALAZINE HYDROCHLORIDE
     Dosage: UNK
     Route: 064
  3. INSULIN ASPART RECOMBINANT [Concomitant]
     Active Substance: INSULIN ASPART
     Dosage: UNK
     Route: 064
  4. NESP [Suspect]
     Active Substance: DARBEPOETIN ALFA
     Indication: EXPOSURE DURING PREGNANCY
     Dosage: UNK
     Route: 064
  5. INSULIN DETEMIR RECOMBINANT [Concomitant]
     Active Substance: INSULIN DETEMIR
     Dosage: UNK
     Route: 064

REACTIONS (5)
  - Coarctation of the aorta [Unknown]
  - Bicuspid aortic valve [Unknown]
  - Foetal distress syndrome [Unknown]
  - Ventricular septal defect [Unknown]
  - Cardiac failure [Unknown]
